FAERS Safety Report 20619755 (Version 2)
Quarter: 2022Q2

REPORT INFORMATION
  Report Type: Spontaneous
  Country: US (occurrence: None)
  Receive Date: 20220322
  Receipt Date: 20220413
  Transmission Date: 20220721
  Serious: No
  Sender: FDA-Public Use
  Company Number: 2022A115180

PATIENT
  Age: 18697 Day
  Sex: Female
  Weight: 187.8 kg

DRUGS (3)
  1. FASENRA [Suspect]
     Active Substance: BENRALIZUMAB
     Indication: Asthma
     Dosage: 30MG/ML EVERY EIGHT WEEKS
     Route: 058
     Dates: start: 202011, end: 20220314
  2. FASENRA [Suspect]
     Active Substance: BENRALIZUMAB
     Indication: Asthma
     Dosage: UNKNOWN
     Route: 058
     Dates: start: 20220314, end: 20220314
  3. TETRACYCLINE [Concomitant]
     Active Substance: TETRACYCLINE

REACTIONS (6)
  - Abdominal pain upper [Recovered/Resolved]
  - Pruritus [Recovered/Resolved]
  - Malaise [Unknown]
  - Nausea [Unknown]
  - Headache [Recovered/Resolved]
  - Rash [Recovered/Resolved]

NARRATIVE: CASE EVENT DATE: 20220314
